FAERS Safety Report 6800991-5 (Version None)
Quarter: 2010Q2

REPORT INFORMATION
  Report Type: 
  Country: None (occurrence: None)
  Receive Date: 20100629
  Receipt Date: 20080108
  Transmission Date: 20101027
  Serious: Yes (Other)
  Sender: FDA-Public Use
  Company Number: US-PFIZER INC-2008004222

PATIENT
  Sex: Female
  Weight: 70.454 kg

DRUGS (2)
  1. PROCARDIA [Suspect]
     Indication: OESOPHAGEAL DISORDER
     Dosage: DAILY
     Dates: start: 20071101, end: 20070101
  2. PROCARDIA [Suspect]
     Indication: VARICES OESOPHAGEAL

REACTIONS (1)
  - HEADACHE [None]
